FAERS Safety Report 6668383-X (Version None)
Quarter: 2010Q2

REPORT INFORMATION
  Report Type: 
  Country: None (occurrence: None)
  Receive Date: 20100406
  Receipt Date: 20100325
  Transmission Date: 20101027
  Serious: Yes (Hospitalization, Other)
  Sender: FDA-Public Use
  Company Number: US-JNJFOC-20100308367

PATIENT
  Sex: Female
  Weight: 65.77 kg

DRUGS (1)
  1. REMICADE [Suspect]
     Indication: PSORIASIS
     Route: 042
     Dates: start: 20071001, end: 20080301

REACTIONS (8)
  - APPENDICITIS [None]
  - BLOOD COUNT ABNORMAL [None]
  - GENERAL PHYSICAL HEALTH DETERIORATION [None]
  - HAEMORRHAGE [None]
  - PAIN [None]
  - RASH PRURITIC [None]
  - SKIN DEPIGMENTATION [None]
  - VISUAL IMPAIRMENT [None]
